FAERS Safety Report 23989897 (Version 4)
Quarter: 2024Q3

REPORT INFORMATION
  Report Type: Spontaneous
  Country: US (occurrence: US)
  Receive Date: 20240619
  Receipt Date: 20240703
  Transmission Date: 20241016
  Serious: Yes (Disabling, Other)
  Sender: PFIZER
  Company Number: US-PFIZER INC-202400195573

PATIENT
  Age: 68 Year
  Sex: Female

DRUGS (1)
  1. EUCRISA [Suspect]
     Active Substance: CRISABOROLE
     Indication: Eczema
     Dosage: APPLY TO AFFECTED AREA BID (TWICE A DAY)
     Route: 061

REACTIONS (9)
  - Illness [Not Recovered/Not Resolved]
  - Renal cancer [Not Recovered/Not Resolved]
  - Severe acute respiratory syndrome [Unknown]
  - Cerebrovascular accident [Unknown]
  - Brain injury [Unknown]
  - Visual impairment [Unknown]
  - Autonomic nervous system imbalance [Unknown]
  - Rash [Unknown]
  - Eczema [Unknown]
